FAERS Safety Report 14869854 (Version 1)
Quarter: 2018Q2

REPORT INFORMATION
  Report Type: Spontaneous
  Country: PT (occurrence: PT)
  Receive Date: 20180509
  Receipt Date: 20180509
  Transmission Date: 20180711
  Serious: Yes (Disabling)
  Sender: FDA-Public Use
  Company Number: PT-PFIZER INC-2018187778

PATIENT
  Age: 54 Year
  Sex: Female
  Weight: 63 kg

DRUGS (7)
  1. TRASTUZUMAB. [Suspect]
     Active Substance: TRASTUZUMAB
     Indication: BREAST CANCER
     Dosage: 504 MG, 1X/DAY
     Route: 042
     Dates: start: 20180301, end: 20180301
  2. RANITIDINE. [Concomitant]
     Active Substance: RANITIDINE
     Indication: PROPHYLAXIS AGAINST GASTROINTESTINAL ULCER
     Dosage: 50 MG, 1X/DAY
     Route: 042
     Dates: start: 20180301, end: 20180301
  3. METHYLPREDNISOLONE. [Concomitant]
     Active Substance: METHYLPREDNISOLONE
     Indication: ALLERGY PROPHYLAXIS
     Dosage: 125 MG, 1X/DAY
     Route: 042
     Dates: start: 20180301, end: 20180301
  4. DOCETAXEL. [Suspect]
     Active Substance: DOCETAXEL
     Indication: BREAST CANCER
     Dosage: 121.5 MG, 1X/DAY
     Route: 042
     Dates: start: 20180301, end: 20180301
  5. PERJETA [Suspect]
     Active Substance: PERTUZUMAB
     Indication: BREAST CANCER
     Dosage: 420 MG, 1X/DAY
     Route: 042
     Dates: start: 20180301, end: 20180301
  6. TAVIST ALLERGY [Concomitant]
     Active Substance: CLEMASTINE FUMARATE
     Indication: ALLERGY PROPHYLAXIS
     Dosage: 2 MG, 1X/DAY
     Route: 042
     Dates: start: 20180301, end: 20180301
  7. ONDANSETRON [Concomitant]
     Active Substance: ONDANSETRON
     Indication: PROPHYLAXIS AGAINST MOTION SICKNESS
     Dosage: 8 MG, 1X/DAY
     Route: 042
     Dates: start: 20180301, end: 20180301

REACTIONS (2)
  - Neuropathy peripheral [Recovered/Resolved]
  - Skin exfoliation [Recovered/Resolved]

NARRATIVE: CASE EVENT DATE: 20180302
